FAERS Safety Report 8067785-7 (Version None)
Quarter: 2012Q1

REPORT INFORMATION
  Report Type: 
  Country: None (occurrence: None)
  Receive Date: 20120124
  Receipt Date: 20120117
  Transmission Date: 20120608
  Serious: No
  Sender: FDA-Public Use
  Company Number: US-BAYER-2012-006085

PATIENT

DRUGS (3)
  1. ASPIRIN [Suspect]
     Route: 048
  2. EXCEDRIN [CAFFEINE,PARACETAMOL] [Concomitant]
  3. ALEVE (CAPLET) [Suspect]
     Route: 048

REACTIONS (1)
  - ADVERSE EVENT [None]
